FAERS Safety Report 14423994 (Version 1)
Quarter: 2018Q1

REPORT INFORMATION
  Report Type: Report from Study
  Country: US (occurrence: US)
  Receive Date: 20180123
  Receipt Date: 20180123
  Transmission Date: 20180509
  Serious: Yes (Other)
  Sender: FDA-Public Use
  Company Number: US-TEVA-2018-US-846416

PATIENT
  Age: 25 Year
  Sex: Female

DRUGS (1)
  1. COPAXONE [Suspect]
     Active Substance: GLATIRAMER ACETATE
     Indication: MULTIPLE SCLEROSIS
     Route: 058
     Dates: start: 20171023, end: 20171120

REACTIONS (10)
  - Pharyngeal oedema [Unknown]
  - Musculoskeletal stiffness [Unknown]
  - Heart rate increased [Unknown]
  - Lip swelling [Not Recovered/Not Resolved]
  - Feeling abnormal [Unknown]
  - Movement disorder [Unknown]
  - Dyspnoea [Unknown]
  - Abdominal pain [Unknown]
  - Erythema [Unknown]
  - Swelling face [Not Recovered/Not Resolved]

NARRATIVE: CASE EVENT DATE: 20171120
